FAERS Safety Report 13182843 (Version 3)
Quarter: 2017Q1

REPORT INFORMATION
  Report Type: Report from Study
  Country: BR (occurrence: BR)
  Receive Date: 20170203
  Receipt Date: 20170221
  Transmission Date: 20170428
  Serious: Yes (Other)
  Sender: FDA-Public Use
  Company Number: ALCN2017BR001098

PATIENT
  Sex: Female

DRUGS (1)
  1. DUOTRAV BAC-FREE [Suspect]
     Active Substance: TIMOLOL\TRAVOPROST
     Indication: GLAUCOMA
     Dosage: 1 GTT, QD
     Route: 047

REACTIONS (4)
  - Asthenia [Recovering/Resolving]
  - Gait disturbance [Recovering/Resolving]
  - Lung infection [Recovered/Resolved]
  - Cardiac infection [Recovered/Resolved]
